FAERS Safety Report 7524377-3 (Version None)
Quarter: 2011Q2

REPORT INFORMATION
  Report Type: 
  Country: None (occurrence: None)
  Receive Date: 20110606
  Receipt Date: 20091123
  Transmission Date: 20111010
  Serious: No
  Sender: FDA-Public Use
  Company Number: 2009BI028241

PATIENT
  Age: 44 Year
  Sex: Female

DRUGS (1)
  1. TYSABRI [Suspect]
     Indication: MULTIPLE SCLEROSIS
     Route: 042
     Dates: start: 20080226

REACTIONS (20)
  - PAIN [None]
  - ROAD TRAFFIC ACCIDENT [None]
  - MUSCULOSKELETAL PAIN [None]
  - HEAD INJURY [None]
  - LOSS OF CONSCIOUSNESS [None]
  - GAIT DISTURBANCE [None]
  - WEIGHT INCREASED [None]
  - STRESS [None]
  - INSOMNIA [None]
  - BACK PAIN [None]
  - INTERVERTEBRAL DISC PROTRUSION [None]
  - INTERVERTEBRAL DISC DEGENERATION [None]
  - INTERVERTEBRAL DISC DISPLACEMENT [None]
  - MENOPAUSAL SYMPTOMS [None]
  - FALL [None]
  - CONCUSSION [None]
  - HYPOTENSION [None]
  - ORTHOSTATIC HYPOTENSION [None]
  - MUSCULAR WEAKNESS [None]
  - THORACIC VERTEBRAL FRACTURE [None]
